FAERS Safety Report 4374992-3 (Version None)
Quarter: 2004Q2

REPORT INFORMATION
  Report Type: 
  Country: None (occurrence: None)
  Receive Date: 20040604
  Receipt Date: 20040525
  Transmission Date: 20050107
  Serious: Yes (Hospitalization)
  Sender: FDA-Public Use
  Company Number: HQWYE113226MAY04

PATIENT
  Age: 2 Year
  Sex: Male

DRUGS (4)
  1. CHILDREN'S ADVIL [Suspect]
     Indication: PYREXIA
     Dosage: ORAL
     Route: 048
     Dates: start: 20040221, end: 20040226
  2. ACETAMINOPHEN [Concomitant]
  3. DEXCHLORPHENIRAMINE MALEATE [Concomitant]
  4. NISAPULVOL (BENZYL HYDROXYBENZOATE/ETHYLPARABEN E214/METHYLPARABEN E21 [Concomitant]

REACTIONS (8)
  - ALANINE AMINOTRANSFERASE INCREASED [None]
  - ASPARTATE AMINOTRANSFERASE INCREASED [None]
  - BLOOD BILIRUBIN INCREASED [None]
  - BLOOD GLUCOSE DECREASED [None]
  - CELLULITIS [None]
  - FISTULA [None]
  - GAMMA-GLUTAMYLTRANSFERASE INCREASED [None]
  - STREPTOCOCCAL ABSCESS [None]
